FAERS Safety Report 8810643 (Version 1)
Quarter: 2012Q4

REPORT INFORMATION
  Report Type: 
  Country: US (occurrence: US)
  Receive Date: 20120927
  Receipt Date: 20120927
  Transmission Date: 20130627
  Serious: Yes (Hospitalization)
  Sender: FDA-Public Use
  Company Number: US-AMGEN-USASP2012060729

PATIENT
  Sex: Male

DRUGS (1)
  1. ENBREL [Suspect]
     Indication: RHEUMATOID ARTHRITIS
     Dosage: 50 mg, qwk
     Dates: start: 20050201

REACTIONS (3)
  - Ankle fracture [Recovered/Resolved]
  - Cardiac operation [Recovered/Resolved]
  - Rheumatoid arthritis [Not Recovered/Not Resolved]
